FAERS Safety Report 6121638-X (Version None)
Quarter: 2009Q1

REPORT INFORMATION
  Report Type: 
  Country: None (occurrence: None)
  Receive Date: 20090313
  Receipt Date: 20090302
  Transmission Date: 20090719
  Serious: Yes (Hospitalization)
  Sender: FDA-Public Use
  Company Number: US025569

PATIENT
  Age: 39 Year
  Sex: Male

DRUGS (4)
  1. TIAGABINE HCL [Suspect]
     Indication: COMPLEX PARTIAL SEIZURES
     Dosage: 16 MG TID ORAL
     Route: 048
  2. GEMFIBROZIL [Suspect]
     Indication: HYPERTRIGLYCERIDAEMIA
     Dosage: 600 MG BID ORAL
     Route: 048
  3. GEMFIBROZIL [Suspect]
     Indication: HYPERTRIGLYCERIDAEMIA
     Dosage: 300 MG ONCE
  4. CARBAMAZEPINE [Concomitant]

REACTIONS (13)
  - AGITATION [None]
  - ALTERED STATE OF CONSCIOUSNESS [None]
  - ASTHENIA [None]
  - COMA [None]
  - CONFUSIONAL STATE [None]
  - CONVULSION [None]
  - DIZZINESS [None]
  - DRUG INTERACTION [None]
  - DRUG LEVEL INCREASED [None]
  - DRUG TOXICITY [None]
  - LETHARGY [None]
  - LOSS OF CONSCIOUSNESS [None]
  - STATUS EPILEPTICUS [None]
